FAERS Safety Report 22143797 (Version 1)
Quarter: 2023Q1

REPORT INFORMATION
  Report Type: Spontaneous
  Country: JP (occurrence: JP)
  Receive Date: 20230327
  Receipt Date: 20230327
  Transmission Date: 20230418
  Serious: Yes (Hospitalization, Other)
  Sender: FDA-Public Use
  Company Number: JP-BRISTOL-MYERS SQUIBB COMPANY-2023-041893

PATIENT
  Age: 61 Year
  Sex: Male

DRUGS (1)
  1. ORENCIA [Suspect]
     Active Substance: ABATACEPT
     Indication: Rheumatoid arthritis
     Route: 041
     Dates: start: 20230316

REACTIONS (4)
  - Pyrexia [Recovering/Resolving]
  - Chills [Recovering/Resolving]
  - Anaphylactoid reaction [Recovering/Resolving]
  - Infusion related reaction [Recovering/Resolving]

NARRATIVE: CASE EVENT DATE: 20230316
